FAERS Safety Report 8257271-3 (Version None)
Quarter: 2012Q2

REPORT INFORMATION
  Report Type: 
  Country: None (occurrence: None)
  Receive Date: 20120403
  Receipt Date: 20120207
  Transmission Date: 20120825
  Serious: No
  Sender: FDA-Public Use
  Company Number: US-BAYER-2012-031803

PATIENT
  Age: 43 Year
  Sex: Female

DRUGS (5)
  1. BETASERON [Suspect]
     Indication: MULTIPLE SCLEROSIS
     Dosage: 0.062 MG, QOD
     Route: 058
     Dates: start: 20080201
  2. BETASERON [Suspect]
     Dosage: 0.187 MG, QOD
     Route: 058
  3. BETASERON [Suspect]
     Dosage: 0.25 MG, QOD
     Route: 058
     Dates: end: 20090101
  4. BETASERON [Suspect]
     Dosage: 0.125 MG, QOD
     Route: 058
  5. BETASERON [Suspect]
     Dosage: UNK
     Dates: start: 20111001

REACTIONS (1)
  - NO ADVERSE EVENT [None]
